FAERS Safety Report 17288538 (Version 2)
Quarter: 2020Q1

REPORT INFORMATION
  Report Type: Spontaneous
  Country: US (occurrence: US)
  Receive Date: 20200120
  Receipt Date: 20200224
  Transmission Date: 20200409
  Serious: Yes (Other)
  Sender: FDA-Public Use
  Company Number: US-PFIZER INC-2020021406

PATIENT
  Age: 56 Year
  Sex: Female
  Weight: 90.72 kg

DRUGS (2)
  1. SKELAXIN [Suspect]
     Active Substance: METAXALONE
     Indication: MYALGIA
     Dosage: 300 MG, UP TO 3 TABLETS A DAY. MINIMUM DOSE IS ONE TABLET TWICE A DAY
     Route: 048
  2. SKELAXIN [Interacting]
     Active Substance: METAXALONE
     Indication: MUSCLE SPASMS

REACTIONS (6)
  - Drug interaction [Unknown]
  - Vomiting [Recovered/Resolved]
  - Suicidal ideation [Unknown]
  - Gait disturbance [Recovered/Resolved]
  - Dysstasia [Recovered/Resolved]
  - Intentional product misuse [Unknown]
